FAERS Safety Report 25859957 (Version 1)
Quarter: 2025Q3

REPORT INFORMATION
  Report Type: Spontaneous
  Country: US (occurrence: None)
  Receive Date: 20250926
  Receipt Date: 20250926
  Transmission Date: 20251021
  Serious: Yes (unspecified)
  Sender: FDA-CTU
  Company Number: None

PATIENT
  Age: 75 Year
  Sex: Female
  Weight: 57.6 kg

DRUGS (12)
  1. CAPECITABINE [Suspect]
     Active Substance: CAPECITABINE
     Indication: Breast cancer metastatic
     Dosage: 1000 MG TWICE A DAY ORAL ?
     Route: 048
     Dates: start: 20250831, end: 20250901
  2. ARIMIDEX [Suspect]
     Active Substance: ANASTROZOLE
  3. PENICILLIN [Suspect]
     Active Substance: PENICILLIN
  4. SULFAMETHOXAZOLE [Suspect]
     Active Substance: SULFAMETHOXAZOLE
  5. PREDNISONE [Suspect]
     Active Substance: PREDNISONE
  6. IBRANCE [Suspect]
     Active Substance: PALBOCICLIB
  7. LETROZOLE [Suspect]
     Active Substance: LETROZOLE
  8. ABEMACICLIB [Suspect]
     Active Substance: ABEMACICLIB
  9. EXEMESTANE [Suspect]
     Active Substance: EXEMESTANE
  10. ORSERDU [Suspect]
     Active Substance: ELACESTRANT
  11. FASLODEX [Suspect]
     Active Substance: FULVESTRANT
  12. EVEROLIMUS [Suspect]
     Active Substance: EVEROLIMUS

REACTIONS (4)
  - Drug eruption [None]
  - Drug intolerance [None]
  - Myalgia [None]
  - Therapy cessation [None]

NARRATIVE: CASE EVENT DATE: 20250901
